FAERS Safety Report 18415836 (Version 1)
Quarter: 2020Q4

REPORT INFORMATION
  Report Type: Spontaneous
  Country: US (occurrence: US)
  Receive Date: 20201022
  Receipt Date: 20201022
  Transmission Date: 20210114
  Serious: Yes (Other)
  Sender: FDA-Public Use
  Company Number: None

PATIENT
  Age: 58 Year
  Sex: Female
  Weight: 93.15 kg

DRUGS (14)
  1. METHYL B [Concomitant]
  2. VITA D [Concomitant]
  3. ADAIR [Concomitant]
  4. PROPOFOL BY INTRAVENOUS INJECTION [Suspect]
     Active Substance: PROPOFOL
     Indication: SEDATION
  5. GLUCOSAMINE [Concomitant]
     Active Substance: GLUCOSAMINE
  6. MONENUKLAST [Concomitant]
  7. FARZIGA [Concomitant]
  8. NATURE-THROID [Concomitant]
     Active Substance: THYROID, PORCINE
  9. PROGESTERONE. [Concomitant]
     Active Substance: PROGESTERONE
  10. LEXAPRO [Concomitant]
     Active Substance: ESCITALOPRAM OXALATE
  11. VICTOZA [Concomitant]
     Active Substance: LIRAGLUTIDE
  12. NEXIUM [Concomitant]
     Active Substance: ESOMEPRAZOLE MAGNESIUM
  13. FISH OIL [Concomitant]
     Active Substance: FISH OIL
  14. NIACIN. [Concomitant]
     Active Substance: NIACIN

REACTIONS (6)
  - Pyrexia [None]
  - Chills [None]
  - Sneezing [None]
  - Cough [None]
  - Headache [None]
  - Lethargy [None]

NARRATIVE: CASE EVENT DATE: 20201021
